FAERS Safety Report 21956125 (Version 1)
Quarter: 2023Q1

REPORT INFORMATION
  Report Type: Spontaneous
  Country: US (occurrence: US)
  Receive Date: 20230206
  Receipt Date: 20230206
  Transmission Date: 20230418
  Serious: No
  Sender: FDA-Public Use
  Company Number: US-ABBVIE-4292479

PATIENT
  Age: 76 Year
  Sex: Female
  Weight: 87.089 kg

DRUGS (1)
  1. SKYRIZI [Suspect]
     Active Substance: RISANKIZUMAB-RZAA
     Indication: Psoriasis
     Route: 058
     Dates: start: 20221228

REACTIONS (2)
  - Skin haemorrhage [Not Recovered/Not Resolved]
  - Arthropod sting [Not Recovered/Not Resolved]

NARRATIVE: CASE EVENT DATE: 20230201
